FAERS Safety Report 9705590 (Version 1)
Quarter: 2013Q4

REPORT INFORMATION
  Report Type: Spontaneous
  Country: US (occurrence: US)
  Receive Date: 20131122
  Receipt Date: 20131122
  Transmission Date: 20140711
  Serious: No
  Sender: FDA-Public Use
  Company Number: US-GILEAD-2008-0017060

PATIENT
  Sex: Female

DRUGS (5)
  1. LETAIRIS [Suspect]
     Indication: PULMONARY ARTERIAL HYPERTENSION
     Route: 048
     Dates: start: 20080528, end: 20080530
  2. PLENDIL [Concomitant]
  3. DIOVAN [Concomitant]
  4. MOBIC [Concomitant]
  5. FUROSEMIDE [Concomitant]

REACTIONS (1)
  - Dyspepsia [Recovered/Resolved]
